FAERS Safety Report 25010294 (Version 5)
Quarter: 2025Q3

REPORT INFORMATION
  Report Type: Report from Study
  Country: US (occurrence: US)
  Receive Date: 20250225
  Receipt Date: 20250917
  Transmission Date: 20251021
  Serious: Yes (Hospitalization, Other)
  Sender: TAKEDA
  Company Number: US-TAKEDA-2025TUS019901

PATIENT
  Age: 58 Year
  Sex: Male

DRUGS (11)
  1. IXAZOMIB [Suspect]
     Active Substance: IXAZOMIB
     Indication: Plasma cell myeloma
  2. IXAZOMIB [Suspect]
     Active Substance: IXAZOMIB
     Dosage: 2.3 MILLIGRAM, 1/WEEK
  3. IXAZOMIB [Suspect]
     Active Substance: IXAZOMIB
  4. REVLIMID [Concomitant]
     Active Substance: LENALIDOMIDE
  5. ACYCLOVIR [Concomitant]
     Active Substance: ACYCLOVIR
  6. ASPIRIN [Concomitant]
     Active Substance: ASPIRIN
  7. CALCIUM [Concomitant]
     Active Substance: CALCIUM
  8. FUROSEMIDE [Concomitant]
     Active Substance: FUROSEMIDE
  9. LISINOPRIL [Concomitant]
     Active Substance: LISINOPRIL
  10. OXYCODONE [Concomitant]
     Active Substance: OXYCODONE
  11. METOPROLOL SUCCINATE [Concomitant]
     Active Substance: METOPROLOL SUCCINATE

REACTIONS (3)
  - Influenza [Unknown]
  - Spinal fracture [Recovered/Resolved]
  - Product use issue [Unknown]

NARRATIVE: CASE EVENT DATE: 20250527
